FAERS Safety Report 4824204-9 (Version None)
Quarter: 2005Q4

REPORT INFORMATION
  Report Type: 
  Country: None (occurrence: None)
  Receive Date: 20051108
  Receipt Date: 20051020
  Transmission Date: 20060501
  Serious: Yes (Other)
  Sender: FDA-Public Use
  Company Number: USA050599327

PATIENT
  Age: 75 Year
  Sex: Female
  Weight: 68 kg

DRUGS (10)
  1. FORTEO [Suspect]
     Indication: OSTEOPOROSIS
     Dates: start: 20050527, end: 20050701
  2. FLECAINIDE ACETATE [Concomitant]
  3. AMIODARONE [Concomitant]
  4. ALLEGRA [Concomitant]
  5. LORAZEPAM [Concomitant]
  6. NEURONTIN [Concomitant]
  7. ATENOLOL [Concomitant]
  8. DOXAZOSIN [Concomitant]
  9. PROTONIX [Concomitant]
  10. SALSOLON (SALICYLATE SODIUM) [Concomitant]

REACTIONS (11)
  - ARRHYTHMIA [None]
  - ARTHRITIS [None]
  - ATRIAL FIBRILLATION [None]
  - DIZZINESS [None]
  - FEELING ABNORMAL [None]
  - INFLUENZA LIKE ILLNESS [None]
  - MYALGIA [None]
  - PAIN [None]
  - PAIN IN EXTREMITY [None]
  - PARAESTHESIA [None]
  - PHARMACEUTICAL PRODUCT COMPLAINT [None]
